FAERS Safety Report 8907264 (Version 2)
Quarter: 2013Q1

REPORT INFORMATION
  Report Type: Spontaneous
  Country: US (occurrence: US)
  Receive Date: 20121114
  Receipt Date: 20130124
  Transmission Date: 20140127
  Serious: No
  Sender: FDA-Public Use
  Company Number: US-009507513-1211USA003293

PATIENT
  Age: 55 Year
  Sex: Male

DRUGS (4)
  1. PEGINTRON [Suspect]
     Indication: HEPATITIS C
     Dosage: 120 MICROGRAM, QW
     Route: 058
     Dates: start: 20121102
  2. RIBASPHERE [Concomitant]
  3. TELAPREVIR [Concomitant]
  4. CIALIS [Concomitant]

REACTIONS (2)
  - Influenza like illness [Unknown]
  - Fatigue [Unknown]
